FAERS Safety Report 21256155 (Version 3)
Quarter: 2022Q4

REPORT INFORMATION
  Report Type: Spontaneous
  Country: US (occurrence: US)
  Receive Date: 20220825
  Receipt Date: 20221004
  Transmission Date: 20230113
  Serious: Yes (Death, Hospitalization, Other)
  Sender: FDA-Public Use
  Company Number: US-SANOFI-01207808

PATIENT
  Age: 83 Year
  Sex: Female
  Weight: 69.4 kg

DRUGS (41)
  1. ENJAYMO [Suspect]
     Active Substance: SUTIMLIMAB-JOME
     Indication: Cold type haemolytic anaemia
     Dosage: 6500 MG, 1X
     Route: 065
     Dates: start: 20220707, end: 20220707
  2. ENJAYMO [Suspect]
     Active Substance: SUTIMLIMAB-JOME
     Dosage: 6500 MG, 1X
     Route: 065
     Dates: start: 20220714, end: 20220714
  3. ENJAYMO [Suspect]
     Active Substance: SUTIMLIMAB-JOME
     Dosage: 6500 MG, 1X
     Route: 065
     Dates: start: 20220722, end: 20220722
  4. APIXABAN [Concomitant]
     Active Substance: APIXABAN
     Dosage: 2.5 MG BID
     Route: 048
  5. LIPITOR [Concomitant]
     Active Substance: ATORVASTATIN CALCIUM
     Dosage: 1 DF, HS (90 TABLET) BEDTIME
     Route: 048
     Dates: start: 20190116, end: 20220714
  6. FOLVITE [FOLIC ACID] [Concomitant]
     Dosage: 1 MG QD
     Route: 048
     Dates: start: 20200821
  7. LASIX [Concomitant]
     Active Substance: FUROSEMIDE
     Dosage: 40 MG QD
     Route: 048
  8. LASIX [Concomitant]
     Active Substance: FUROSEMIDE
     Dosage: 40 MG QD (INCREASED HOME DOSE FROM 40 MG DAILY TO 4 A.M. AND 20 P.M.)
     Route: 042
  9. PRINIVIL [Concomitant]
     Active Substance: LISINOPRIL
     Dosage: 5 MG QD
     Route: 048
  10. LOPRESSOR [Concomitant]
     Active Substance: METOPROLOL TARTRATE
     Dosage: 12.5 MG QD
     Route: 048
  11. LOPRESSOR [Concomitant]
     Active Substance: METOPROLOL TARTRATE
     Dosage: 12.5 MG QD (12.5 MG TOTAL)
     Route: 048
     Dates: start: 20210604, end: 20220714
  12. ZOFRAN [Concomitant]
     Active Substance: ONDANSETRON HYDROCHLORIDE
     Indication: Nausea
     Dosage: 1 DF, Q8H (8MG QB HOURS PRN) 20 TABLET
     Route: 048
     Dates: start: 20220425
  13. METAMUCIL THERAPY FOR REGULARITY [Concomitant]
     Active Substance: PSYLLIUM HUSK
     Dosage: 1 PACKET-PER ORAL AS NEEDED
     Route: 048
  14. ZOLOFT [Concomitant]
     Active Substance: SERTRALINE HYDROCHLORIDE
     Dosage: 1 DF, QD (30 TABLET TOTAL)
     Route: 048
     Dates: start: 20220401, end: 20220714
  15. DESYREL [Concomitant]
     Active Substance: TRAZODONE HYDROCHLORIDE
     Indication: Sleep disorder
     Dosage: 500 MG AT BEDTIME
     Route: 048
  16. DESYREL [Concomitant]
     Active Substance: TRAZODONE HYDROCHLORIDE
     Dosage: 1 DF (30 TABLET TOTAL) AT BEDTIME AS NEEDED
     Route: 048
     Dates: start: 20190411, end: 20220714
  17. VITAMIN B12 [Concomitant]
     Active Substance: CYANOCOBALAMIN
     Dosage: 100 MG QD
     Route: 048
  18. VITAMIN B12 [Concomitant]
     Active Substance: CYANOCOBALAMIN
     Dosage: 1000 UG, QD
     Route: 048
  19. TRESIBA [Concomitant]
     Active Substance: INSULIN DEGLUDEC
     Dosage: 10 UNITS AT BEDTIME - SUBCUTANEOUS (100 UNIT/ML; 3 ML; INSULIN PEN)
     Route: 058
  20. ELIQUIS [Concomitant]
     Active Substance: APIXABAN
     Indication: Atrial fibrillation
     Dosage: 2.5 MG, BID
     Route: 048
     Dates: start: 20200821
  21. FERROUS SULFATE [Concomitant]
     Active Substance: FERROUS SULFATE
     Dosage: 1 DF, BID (65 MG IRON)
     Route: 048
     Dates: end: 20220713
  22. NOVOLOG [Concomitant]
     Active Substance: INSULIN ASPART
     Dosage: 100 UNIT/ML (3ML) INJECTION PEN
     Dates: start: 20220608
  23. KLOR CON M [Concomitant]
     Active Substance: POTASSIUM CHLORIDE
     Dosage: 1 DF, BID (EXTENDED RELEAS TABLET)
     Route: 048
     Dates: start: 20210804, end: 20220713
  24. DROPLET D [Concomitant]
     Dosage: PEN NEEDLE 31 (GAUGE *3/16IN) USE WITH PEN
     Route: 065
     Dates: start: 20220608
  25. EMLA [Concomitant]
     Active Substance: LIDOCAINE\PRILOCAINE
     Dosage: UNK UNK, 1X (APPLY TOPICALLY ONCE FOR 1 DOSE) 30 G
     Route: 061
  26. SODIUM CHLORIDE [Concomitant]
     Active Substance: SODIUM CHLORIDE
     Dosage: 10 ML, PRN (FLUSH)
     Route: 042
     Dates: start: 20220714, end: 20220719
  27. SODIUM CHLORIDE [Concomitant]
     Active Substance: SODIUM CHLORIDE
     Dosage: 10 ML, PRN (FLUSH)
     Route: 042
     Dates: start: 20220722, end: 20220727
  28. SODIUM CHLORIDE [Concomitant]
     Active Substance: SODIUM CHLORIDE
     Dosage: 3 ML, TID (FLUSH)
     Route: 042
     Dates: start: 20220724
  29. HEPARIN LOCK FLUSH [Concomitant]
     Active Substance: HEPARIN SODIUM
     Dosage: 100 U, PRN (DOSE 5 ML)
     Route: 042
     Dates: start: 20220714, end: 20220719
  30. HEPARIN LOCK FLUSH [Concomitant]
     Active Substance: HEPARIN SODIUM
     Dosage: 100 U, PRN (DOSE 5 ML)
     Route: 042
     Dates: start: 20220722, end: 20220727
  31. SOLU-MEDROL [Concomitant]
     Active Substance: METHYLPREDNISOLONE SODIUM SUCCINATE
     Dosage: 62.5 MG, 1X
     Route: 042
     Dates: start: 20220722, end: 20220722
  32. LEVAQUIN [Concomitant]
     Active Substance: LEVOFLOXACIN
     Dosage: 1 DF, QD (750 MG TOTAL)
     Route: 048
     Dates: start: 20220722, end: 20220727
  33. MICRO K [Concomitant]
     Dosage: 4 DF, QD (40 MEQ TOTAL)
     Route: 048
     Dates: start: 20220722, end: 20220727
  34. MULTAQ [Concomitant]
     Active Substance: DRONEDARONE
     Indication: Atrial fibrillation
     Dosage: UNK
  35. CHLORHEXIDINE GLUCONATE [Concomitant]
     Active Substance: CHLORHEXIDINE GLUCONATE
     Dosage: UNK UNK, QD (AT 12 NOON)
     Route: 061
  36. ACETAMINOPHEN [Concomitant]
     Active Substance: ACETAMINOPHEN
     Dosage: UNK
     Route: 065
  37. ALTEPLASE [Concomitant]
     Active Substance: ALTEPLASE
     Dosage: UNK
     Route: 065
  38. BISACODYL [Concomitant]
     Active Substance: BISACODYL
     Dosage: UNK
     Route: 065
  39. DEXTROMETHORPHAN\GUAIFENESIN [Concomitant]
     Active Substance: DEXTROMETHORPHAN\GUAIFENESIN
     Dosage: UNK
     Route: 065
  40. MAGNESIUM HYDROXIDE [Concomitant]
     Active Substance: MAGNESIUM HYDROXIDE
     Dosage: UNK
     Route: 065
  41. MELATONIN [Concomitant]
     Active Substance: MELATONIN
     Dosage: UNK
     Route: 065

REACTIONS (17)
  - Respiratory failure [Fatal]
  - Dyspnoea [Fatal]
  - Condition aggravated [Fatal]
  - Hypoxia [Fatal]
  - Respiratory distress [Fatal]
  - White blood cell count increased [Fatal]
  - Leukocytosis [Fatal]
  - Mental disorder [Fatal]
  - Cardiac failure congestive [Fatal]
  - Brain natriuretic peptide increased [Fatal]
  - Oedema peripheral [Fatal]
  - Pleural effusion [Fatal]
  - Acute pulmonary oedema [Fatal]
  - Livedo reticularis [Fatal]
  - Rash [Unknown]
  - Pruritus [Recovered/Resolved]
  - Fatigue [Unknown]

NARRATIVE: CASE EVENT DATE: 20220701
